FAERS Safety Report 7197416-X (Version None)
Quarter: 2010Q4

REPORT INFORMATION
  Report Type: 
  Country: None (occurrence: None)
  Receive Date: 20101206
  Receipt Date: 20101124
  Transmission Date: 20110411
  Serious: Yes (Other)
  Sender: FDA-Public Use
  Company Number: 2010SP055429

PATIENT
  Age: 35 Year
  Sex: Female
  Weight: 58 kg

DRUGS (4)
  1. IMPLANON [Suspect]
     Indication: PRODUCT USED FOR UNKNOWN INDICATION
     Dosage: 1 DF; 1 DF; 1 DF
     Dates: end: 20100226
  2. IMPLANON [Suspect]
     Indication: PRODUCT USED FOR UNKNOWN INDICATION
     Dosage: 1 DF; 1 DF; 1 DF
     Dates: start: 20100226
  3. IMPLANON [Suspect]
  4. RIFINAH (RIFINAH) [Suspect]
     Indication: TUBERCULOSIS
     Dates: start: 20100424, end: 20100901

REACTIONS (3)
  - DRUG EXPOSURE DURING PREGNANCY [None]
  - PREGNANCY WITH IMPLANT CONTRACEPTIVE [None]
  - TWIN PREGNANCY [None]
